FAERS Safety Report 7085976-9 (Version None)
Quarter: 2010Q4

REPORT INFORMATION
  Report Type: 
  Country: None (occurrence: None)
  Receive Date: 20101008
  Receipt Date: 20100809
  Transmission Date: 20110411
  Serious: Yes (Other)
  Sender: FDA-Public Use
  Company Number: 2010SP043413

PATIENT
  Age: 42 Year
  Sex: Female

DRUGS (2)
  1. TEMODAR [Suspect]
     Indication: PRODUCT USED FOR UNKNOWN INDICATION
     Dates: start: 20100620, end: 20100720
  2. BACTRIM [Concomitant]

REACTIONS (1)
  - PANCYTOPENIA [None]
